FAERS Safety Report 6162728-5 (Version None)
Quarter: 2009Q2

REPORT INFORMATION
  Report Type: 
  Country: None (occurrence: None)
  Receive Date: 20090421
  Receipt Date: 20080403
  Transmission Date: 20091009
  Serious: No
  Sender: FDA-Public Use
  Company Number: US-ASTRAZENECA-2008UW06694

PATIENT
  Age: 81 Year
  Sex: Female
  Weight: 60.8 kg

DRUGS (4)
  1. METOPROLOL SUCCINATE [Suspect]
     Indication: ARRHYTHMIA
  2. ARIMIDEX [Concomitant]
  3. SYNTHROID [Concomitant]
  4. EQUATE [Concomitant]

REACTIONS (2)
  - HEART RATE INCREASED [None]
  - MUSCULAR WEAKNESS [None]
